FAERS Safety Report 14427627 (Version 1)
Quarter: 2018Q1

REPORT INFORMATION
  Report Type: Spontaneous
  Country: US (occurrence: US)
  Receive Date: 20180123
  Receipt Date: 20180123
  Transmission Date: 20180509
  Serious: Yes (Hospitalization)
  Sender: FDA-Public Use
  Company Number: US-BIOMARINAP-US-2018-116848

PATIENT
  Age: 24 Month
  Sex: Female
  Weight: 9.8 kg

DRUGS (1)
  1. ALDURAZYME [Suspect]
     Active Substance: LARONIDASE
     Indication: PRODUCT USED FOR UNKNOWN INDICATION
     Dosage: 0.59 MG/KG, QW
     Route: 041
     Dates: start: 201508

REACTIONS (2)
  - Device related infection [Unknown]
  - Sepsis [Unknown]

NARRATIVE: CASE EVENT DATE: 20180108
